FAERS Safety Report 15761402 (Version 1)
Quarter: 2018Q4

REPORT INFORMATION
  Report Type: Spontaneous
  Country: IN (occurrence: IN)
  Receive Date: 20181226
  Receipt Date: 20181226
  Transmission Date: 20190205
  Serious: Yes (Death, Hospitalization)
  Sender: FDA-Public Use
  Company Number: IN-MYLANLABS-2018M1095350

PATIENT
  Age: 45 Year
  Sex: Male

DRUGS (4)
  1. ETOPOSIDE. [Suspect]
     Active Substance: ETOPOSIDE
     Dosage: FOUR CYCLES WITH INTERVAL OF 21 DAYS (SUCCEEDED THE RADIOTHERAPY)
     Route: 065
  2. CISPLATIN. [Suspect]
     Active Substance: CISPLATIN
     Indication: NEUROBLASTOMA
     Dosage: TWO CYCLES WITH INTERVAL OF 21 DAYS (PRECEDED THE RADIOTHERAPY)
     Route: 065
  3. CISPLATIN. [Suspect]
     Active Substance: CISPLATIN
     Dosage: FOUR CYCLES WITH INTERVAL OF 21 DAYS (SUCCEEDED THE RADIOTHERAPY)
     Route: 065
  4. ETOPOSIDE. [Suspect]
     Active Substance: ETOPOSIDE
     Indication: NEUROBLASTOMA
     Dosage: TWO CYCLES WITH INTERVAL OF 21 DAYS (PRECEDED THE RADIOTHERAPY)
     Route: 065

REACTIONS (3)
  - Subcutaneous emphysema [Recovering/Resolving]
  - Respiratory failure [Fatal]
  - Pneumomediastinum [Recovering/Resolving]
